FAERS Safety Report 15961364 (Version 2)
Quarter: 2019Q1

REPORT INFORMATION
  Report Type: Spontaneous
  Country: PL (occurrence: PL)
  Receive Date: 20190214
  Receipt Date: 20190222
  Transmission Date: 20190417
  Serious: Yes (Other)
  Sender: FDA-Public Use
  Company Number: PL-ASTRAZENECA-2019SE22800

PATIENT
  Age: 67 Year
  Sex: Female

DRUGS (6)
  1. CO-PRESTARIUM [Concomitant]
     Active Substance: AMLODIPINE\PERINDOPRIL
  2. BETO ZK [Concomitant]
     Active Substance: METOPROLOL SUCCINATE
  3. ALVESCO [Suspect]
     Active Substance: CICLESONIDE
     Indication: ASTHMA
     Route: 055
  4. ATIMOS [Concomitant]
     Active Substance: FORMOTEROL
     Indication: ASTHMA
  5. EUTHYROX [Concomitant]
     Active Substance: LEVOTHYROXINE SODIUM
  6. PULMICORT RESPULES [Suspect]
     Active Substance: BUDESONIDE
     Dosage: 250 MG/ML: 2 ML, TWICE DAILY, (A TOTAL OF 1 G BUDESONIDE PER DAY)
     Route: 055
     Dates: start: 20190205, end: 20190207

REACTIONS (3)
  - Blood pressure increased [Unknown]
  - Pneumonitis [Unknown]
  - Bronchitis [Recovered/Resolved]

NARRATIVE: CASE EVENT DATE: 20190118
